FAERS Safety Report 20752938 (Version 1)
Quarter: 2022Q2

REPORT INFORMATION
  Report Type: Spontaneous
  Country: US (occurrence: None)
  Receive Date: 20220426
  Receipt Date: 20220426
  Transmission Date: 20220721
  Serious: No
  Sender: FDA-Public Use
  Company Number: US-ROCHE-2946369

PATIENT
  Age: 61 Year
  Sex: Female

DRUGS (2)
  1. ESBRIET [Suspect]
     Active Substance: PIRFENIDONE
     Indication: Idiopathic pulmonary fibrosis
     Dosage: WITH FOOD, B-L-D, DAY 1 THROUGH 7: 1 TABLET BY MOUTH THREE TIMES A DAY WITH MEALS DAY 8 THROUGH 14:
     Route: 048
     Dates: start: 20211021
  2. OXYGEN [Concomitant]
     Active Substance: OXYGEN

REACTIONS (1)
  - Headache [Recovering/Resolving]

NARRATIVE: CASE EVENT DATE: 20211024
